FAERS Safety Report 6298104-4 (Version None)
Quarter: 2009Q3

REPORT INFORMATION
  Report Type: 
  Country: None (occurrence: None)
  Receive Date: 20090805
  Receipt Date: 20090729
  Transmission Date: 20100115
  Serious: Yes (Life-Threatening, Other)
  Sender: FDA-Public Use
  Company Number: PHEH2009US08665

PATIENT
  Sex: Male
  Weight: 23.583 kg

DRUGS (3)
  1. FOCALIN XR [Suspect]
     Indication: ATTENTION DEFICIT/HYPERACTIVITY DISORDER
     Dosage: 10 MG MORNING AND 1:30PM
     Route: 048
     Dates: start: 20071115
  2. CLONIDINE [Concomitant]
     Dosage: 0.1 MG Q 5PM AND QHS
  3. STRATTERA [Concomitant]
     Dosage: 25 MG, QD

REACTIONS (6)
  - BODY TEMPERATURE DECREASED [None]
  - CARDIAC ARREST [None]
  - CYANOSIS [None]
  - NEAR DROWNING [None]
  - RESPIRATORY ARREST [None]
  - UNRESPONSIVE TO STIMULI [None]
